FAERS Safety Report 8576209 (Version 10)
Quarter: 2014Q1

REPORT INFORMATION
  Report Type: Report from Study
  Country: IT (occurrence: IT)
  Receive Date: 20120523
  Receipt Date: 20140305
  Transmission Date: 20141002
  Serious: Yes (Other)
  Sender: FDA-Public Use
  Company Number: IT-ROCHE-1069575

PATIENT
  Age: 43 Year
  Sex: Male
  Weight: 80 kg

DRUGS (2)
  1. VEMURAFENIB [Suspect]
     Indication: METASTATIC MALIGNANT MELANOMA
     Dosage: LAST DOSE PRIOR TO THE SAE ON 25/JAN/2012
     Route: 048
     Dates: start: 20111017
  2. VEMURAFENIB [Suspect]
     Dosage: LAST DOSE PRIOR TO THE SAE ON 05/MAR/2012
     Route: 048
     Dates: start: 20120126

REACTIONS (1)
  - Malignant melanoma [Recovered/Resolved]
